FAERS Safety Report 5776485-5 (Version None)
Quarter: 2008Q2

REPORT INFORMATION
  Report Type: 
  Country: None (occurrence: None)
  Receive Date: 20080616
  Receipt Date: 20080310
  Transmission Date: 20081010
  Serious: Yes (Hospitalization)
  Sender: FDA-Public Use
  Company Number: 8030906

PATIENT
  Sex: Male

DRUGS (1)
  1. CORACTEN [Suspect]
     Dosage: 30 MG

REACTIONS (2)
  - DYSPHAGIA [None]
  - LARYNGEAL OPERATION [None]
